FAERS Safety Report 9731462 (Version 2)
Quarter: 2013Q4

REPORT INFORMATION
  Report Type: Spontaneous
  Country: PT (occurrence: PT)
  Receive Date: 20131205
  Receipt Date: 20131210
  Transmission Date: 20140711
  Serious: Yes (Disabling)
  Sender: FDA-Public Use
  Company Number: PT-009507513-1312PRT000773

PATIENT
  Age: 37 Year
  Sex: Female

DRUGS (1)
  1. IMPLANON NXT [Suspect]
     Indication: CONTRACEPTION
     Dosage: UNK
     Dates: start: 20131128

REACTIONS (9)
  - Impaired driving ability [Recovered/Resolved]
  - Local swelling [Recovering/Resolving]
  - Movement disorder [Recovering/Resolving]
  - Contusion [Recovering/Resolving]
  - Pain in extremity [Recovering/Resolving]
  - Procedural pain [Recovering/Resolving]
  - Device difficult to use [Recovered/Resolved]
  - Device expulsion [Recovered/Resolved]
  - Product quality issue [Unknown]
